FAERS Safety Report 7957116-2 (Version None)
Quarter: 2011Q4

REPORT INFORMATION
  Report Type: 
  Country: None (occurrence: None)
  Receive Date: 20111130
  Receipt Date: 20111117
  Transmission Date: 20120403
  Serious: Yes (Life-Threatening, Hospitalization)
  Sender: FDA-Public Use
  Company Number: IMP_05468_2011

PATIENT
  Age: 68 Year
  Sex: Male

DRUGS (3)
  1. NORMAL SALINE (UNKNOWN UNTIL NOT CONTINUING) [Concomitant]
  2. MINOCYCLINE HCL [Suspect]
     Indication: PULMONARY AIR LEAKAGE
     Dosage: (TWICE)
  3. LIDOCAINE HYDROCHLORIDE (UNKNOWN UNTIL NOT CONTINUING) [Concomitant]

REACTIONS (12)
  - POST PROCEDURAL COMPLICATION [None]
  - WHEEZING [None]
  - DYSPNOEA [None]
  - SUBCUTANEOUS EMPHYSEMA [None]
  - BRONCHOPLEURAL FISTULA [None]
  - ASPIRATION [None]
  - CARDIO-RESPIRATORY ARREST [None]
  - BRONCHIAL OEDEMA [None]
  - EMPYEMA [None]
  - ACIDOSIS [None]
  - HYPERCAPNIA [None]
  - RESPIRATORY TRACT INFLAMMATION [None]
